FAERS Safety Report 9753558 (Version 2)
Quarter: 2014Q1

REPORT INFORMATION
  Report Type: Spontaneous
  Country: CA (occurrence: CA)
  Receive Date: 20131213
  Receipt Date: 20140113
  Transmission Date: 20141002
  Serious: Yes (Hospitalization)
  Sender: FDA-Public Use
  Company Number: CA-PFIZER INC-2013354961

PATIENT
  Age: 70 Year
  Sex: Female
  Weight: 63.04 kg

DRUGS (2)
  1. SOMAVERT [Suspect]
     Dosage: 10 MG, UNK
  2. CELEBREX [Concomitant]
     Indication: ARTHRITIS
     Dosage: 200 MG, 2X/DAY
     Dates: end: 20131206

REACTIONS (4)
  - Diarrhoea [Unknown]
  - Nausea [Unknown]
  - Pyrexia [Unknown]
  - Dehydration [Unknown]
